FAERS Safety Report 15371082 (Version 1)
Quarter: 2018Q3

REPORT INFORMATION
  Report Type: Spontaneous
  Country: US (occurrence: US)
  Receive Date: 20180905
  Receipt Date: 20180905
  Transmission Date: 20181010
  Serious: No
  Sender: FDA-Public Use
  Company Number: None

PATIENT
  Age: 63 Year
  Sex: Female

DRUGS (3)
  1. PRAVASTATIN. [Concomitant]
     Active Substance: PRAVASTATIN
  2. MYCOPHENOLATE [Concomitant]
     Active Substance: MYCOPHENOLIC ACID
  3. CYCLOSPORINE CAP MD [Suspect]
     Active Substance: CYCLOSPORINE
     Dates: start: 199509

REACTIONS (1)
  - Myalgia [None]

NARRATIVE: CASE EVENT DATE: 20130904
